FAERS Safety Report 8620217-X (Version None)
Quarter: 2012Q3

REPORT INFORMATION
  Report Type: 
  Country: None (occurrence: None)
  Receive Date: 20120824
  Receipt Date: 20120817
  Transmission Date: 20120928
  Serious: Yes (Other)
  Sender: FDA-Public Use
  Company Number: PHHY2012NO071403

PATIENT
  Sex: Male

DRUGS (5)
  1. TAMSULOSIN HYDROCHLORIDE [Concomitant]
     Route: 048
  2. ATORVASTATIN [Suspect]
     Indication: HYPERLIPIDAEMIA
     Route: 048
     Dates: start: 20120101
  3. PLENDIL [Concomitant]
     Indication: PRODUCT USED FOR UNKNOWN INDICATION
     Route: 048
  4. PLAVIX [Suspect]
     Indication: PRODUCT USED FOR UNKNOWN INDICATION
     Dosage: 75 MG, QD
     Route: 048
     Dates: start: 20120101
  5. VALSARTAN [Suspect]
     Route: 048
     Dates: start: 20120101

REACTIONS (3)
  - FATIGUE [None]
  - CONJUNCTIVAL HAEMORRHAGE [None]
  - CEREBROVASCULAR ACCIDENT [None]
